FAERS Safety Report 25509173 (Version 1)
Quarter: 2025Q3

REPORT INFORMATION
  Report Type: Report from Study
  Country: US (occurrence: US)
  Receive Date: 20250703
  Receipt Date: 20250703
  Transmission Date: 20251020
  Serious: Yes (Hospitalization)
  Sender: ABBVIE
  Company Number: US-ABBVIE-5867310

PATIENT
  Age: 47 Year
  Sex: Female

DRUGS (3)
  1. SKYRIZI [Suspect]
     Active Substance: RISANKIZUMAB-RZAA
     Indication: Psoriatic arthropathy
     Route: 058
     Dates: start: 20240802
  2. SKYRIZI [Suspect]
     Active Substance: RISANKIZUMAB-RZAA
     Route: 058
     Dates: start: 20240119
  3. OZEMPIC [Suspect]
     Active Substance: SEMAGLUTIDE
     Indication: Product used for unknown indication
     Route: 065
     Dates: start: 2024

REACTIONS (12)
  - Chronic obstructive pulmonary disease [Unknown]
  - Psoriasis [Recovering/Resolving]
  - Vomiting [Recovered/Resolved]
  - Sleep apnoea syndrome [Unknown]
  - Arthralgia [Recovering/Resolving]
  - Eye infection [Not Recovered/Not Resolved]
  - Psoriatic arthropathy [Unknown]
  - Illness [Recovering/Resolving]
  - Fatigue [Unknown]
  - Sluggishness [Unknown]
  - Nausea [Recovered/Resolved]
  - Vomiting [Not Recovered/Not Resolved]

NARRATIVE: CASE EVENT DATE: 20240101
